FAERS Safety Report 5162066-3 (Version None)
Quarter: 2006Q4

REPORT INFORMATION
  Report Type: 
  Country: None (occurrence: None)
  Receive Date: 20061121
  Receipt Date: 20061109
  Transmission Date: 20070319
  Serious: Yes (Hospitalization)
  Sender: FDA-Public Use
  Company Number: 232372

PATIENT
  Age: 57 Year
  Sex: Female

DRUGS (5)
  1. MABTHERA [Suspect]
     Indication: B-CELL LYMPHOMA
     Dosage: 560 MG, INTRAVENOUS
     Route: 042
     Dates: start: 20061017, end: 20061031
  2. CONCOMITANT DRUG                          (GENERIC COMPONENT(S) NOT KN [Concomitant]
  3. TRAMADOL HCL [Concomitant]
  4. TRAMAL (TRAMADOL HCL) (TRAMADOL HYDROCHLORIDE) [Concomitant]
  5. .................. [Concomitant]

REACTIONS (2)
  - NAUSEA [None]
  - VERTIGO [None]
